FAERS Safety Report 13387029 (Version 1)
Quarter: 2017Q1

REPORT INFORMATION
  Report Type: Spontaneous
  Country: GB (occurrence: GB)
  Receive Date: 20170330
  Receipt Date: 20170330
  Transmission Date: 20170429
  Serious: Yes (Life-Threatening, Hospitalization)
  Sender: FDA-Public Use
  Company Number: GB-ACCORD-049591

PATIENT
  Age: 86 Year
  Sex: Female
  Weight: 62.8 kg

DRUGS (6)
  1. SODIUM BICARBONATE. [Concomitant]
     Active Substance: SODIUM BICARBONATE
  2. RAMIPRIL. [Concomitant]
     Active Substance: RAMIPRIL
  3. ANASTROZOLE. [Suspect]
     Active Substance: ANASTROZOLE
     Indication: PRODUCT USED FOR UNKNOWN INDICATION
     Route: 048
  4. PADMED CIRCOSAN [Suspect]
     Active Substance: CALCIUM SULFATE\HERBALS
     Indication: PERIPHERAL ARTERIAL OCCLUSIVE DISEASE
     Route: 048
     Dates: end: 20170218
  5. ACETYLSALICYLIC ACID [Concomitant]
     Active Substance: ASPIRIN
  6. WARFARIN [Concomitant]
     Active Substance: WARFARIN
     Indication: ARTERIAL THROMBOSIS
     Dosage: AIMING FOR INTERNATIONAL NORMALIZED RATIO 2-3
     Dates: start: 20170302

REACTIONS (4)
  - Atrioventricular block [Unknown]
  - Off label use [Unknown]
  - Acute myocardial infarction [Recovered/Resolved with Sequelae]
  - Acute kidney injury [Unknown]

NARRATIVE: CASE EVENT DATE: 20170218
